FAERS Safety Report 5719627-X (Version None)
Quarter: 2008Q2

REPORT INFORMATION
  Report Type: 
  Country: None (occurrence: None)
  Receive Date: 20080428
  Receipt Date: 20080417
  Transmission Date: 20081010
  Serious: Yes (Other)
  Sender: FDA-Public Use
  Company Number: US-JNJFOC-20080405426

PATIENT
  Sex: Female
  Weight: 43.09 kg

DRUGS (3)
  1. DURAGESIC-100 [Suspect]
     Indication: PAIN
     Route: 062
  2. KLONOPIN [Concomitant]
     Indication: ANXIETY
     Route: 048
  3. DILANTIN [Concomitant]
     Indication: CONVULSION
     Route: 048

REACTIONS (5)
  - CONVULSION [None]
  - DIARRHOEA [None]
  - NAUSEA [None]
  - VOMITING [None]
  - WEIGHT DECREASED [None]
